FAERS Safety Report 7051235-3 (Version None)
Quarter: 2010Q4

REPORT INFORMATION
  Report Type: 
  Country: None (occurrence: None)
  Receive Date: 20101019
  Receipt Date: 20101008
  Transmission Date: 20110411
  Serious: Yes (Other)
  Sender: FDA-Public Use
  Company Number: FI-JNJFOC-20100906112

PATIENT
  Sex: Female

DRUGS (10)
  1. REMICADE [Suspect]
     Indication: CROHN'S DISEASE
     Route: 042
  2. REMICADE [Suspect]
     Route: 042
  3. REMICADE [Suspect]
     Route: 042
  4. REMICADE [Suspect]
     Dosage: 400-500 MG
     Route: 042
  5. AEROBEC [Concomitant]
     Indication: DYSPNOEA
     Dosage: 200-400 MICROGRAMS DAILY
     Route: 055
  6. ANTIBIOTICS [Concomitant]
  7. MONTELUKAST [Concomitant]
     Indication: DYSPNOEA
     Route: 048
  8. THYROXIN [Concomitant]
     Indication: HYPOTHYROIDISM
     Route: 048
  9. AMLODIPINE [Concomitant]
     Indication: HYPERTENSION
     Route: 048
  10. RAMIPRIL [Concomitant]
     Indication: HYPERTENSION
     Route: 048

REACTIONS (6)
  - BRONCHITIS [None]
  - EPISTAXIS [None]
  - HAEMOPTYSIS [None]
  - LUNG INFECTION [None]
  - PNEUMONIA [None]
  - SINUSITIS [None]
